FAERS Safety Report 4708582-7 (Version None)
Quarter: 2005Q3

REPORT INFORMATION
  Report Type: 
  Country: None (occurrence: None)
  Receive Date: 20050706
  Receipt Date: 20050623
  Transmission Date: 20060218
  Serious: Yes (Hospitalization)
  Sender: FDA-Public Use
  Company Number: 2005094394

PATIENT
  Sex: Male

DRUGS (1)
  1. BEXTRA [Suspect]
     Indication: PAIN
     Dates: start: 20021101

REACTIONS (3)
  - CEREBROVASCULAR ACCIDENT [None]
  - EMBOLISM [None]
  - TRANSIENT ISCHAEMIC ATTACK [None]
